FAERS Safety Report 17989853 (Version 1)
Quarter: 2020Q3

REPORT INFORMATION
  Report Type: Report from Study
  Country: CZ (occurrence: CZ)
  Receive Date: 20200707
  Receipt Date: 20200707
  Transmission Date: 20201103
  Serious: Yes (Other)
  Sender: FDA-Public Use
  Company Number: CZ-JNJFOC-20200638295

PATIENT
  Age: 46 Year
  Sex: Female

DRUGS (2)
  1. AMOKSIKLAV /00852501/ [Suspect]
     Active Substance: AMOXICILLIN\CLAVULANIC ACID
     Indication: PULPITIS DENTAL
  2. SIMPONI [Suspect]
     Active Substance: GOLIMUMAB
     Indication: RHEUMATOID ARTHRITIS
     Route: 058
     Dates: start: 20200402

REACTIONS (1)
  - Pulpitis dental [Recovering/Resolving]

NARRATIVE: CASE EVENT DATE: 20200622
